FAERS Safety Report 14300638 (Version 1)
Quarter: 2017Q4

REPORT INFORMATION
  Report Type: Spontaneous
  Country: US (occurrence: US)
  Receive Date: 20171218
  Receipt Date: 20171218
  Transmission Date: 20180321
  Serious: Yes (Life-Threatening, Hospitalization)
  Sender: FDA-Public Use
  Company Number: None

PATIENT
  Age: 67 Year
  Sex: Male

DRUGS (1)
  1. REGADENOSON [Suspect]
     Active Substance: REGADENOSON
     Indication: CARDIAC STRESS TEST
     Route: 042
     Dates: start: 20171208, end: 20171208

REACTIONS (4)
  - Cough [None]
  - Wheezing [None]
  - Angioedema [None]
  - Respiratory depression [None]

NARRATIVE: CASE EVENT DATE: 20171212
